FAERS Safety Report 17464267 (Version 1)
Quarter: 2020Q1

REPORT INFORMATION
  Report Type: Spontaneous
  Country: US (occurrence: US)
  Receive Date: 20200226
  Receipt Date: 20200226
  Transmission Date: 20200409
  Serious: Yes (Death, Hospitalization)
  Sender: FDA-Public Use
  Company Number: US-MYLANLABS-2020M1020979

PATIENT
  Age: 11 Month
  Sex: Female

DRUGS (1)
  1. NIFEDIPINE. [Suspect]
     Active Substance: NIFEDIPINE
     Indication: PRODUCT USED FOR UNKNOWN INDICATION
     Route: 048

REACTIONS (6)
  - Gastric haemorrhage [Fatal]
  - Atrioventricular block [Fatal]
  - Accidental poisoning [Fatal]
  - Bradycardia [Fatal]
  - Cardiac arrest [Fatal]
  - Vomiting [Not Recovered/Not Resolved]
